FAERS Safety Report 9512073 (Version 1)
Quarter: 2013Q1

REPORT INFORMATION
  Report Type: Spontaneous
  Country: US (occurrence: None)
  Receive Date: 20130305
  Receipt Date: 20130305
  Transmission Date: 20140127
  Serious: Yes (Hospitalization)
  Sender: FDA-Public Use
  Company Number: 163-21880-12050511

PATIENT
  Age: 90 Year
  Sex: Female

DRUGS (25)
  1. REVLIMID [Suspect]
     Indication: PLASMA CELL MYELOMA
     Dosage: 10 MG, DAILY X 21 DAYS, PO
     Route: 048
     Dates: start: 20120419, end: 20120426
  2. REMERON (MIRTAZAPINE) (UNKNOWN) [Concomitant]
  3. LEXAPRO (ESCITALOPRAM OXALATE) (UNKNOWN) [Concomitant]
  4. PROZAC (FLUOXETINE HYDROCHLORIDE) (UNKNOWN) [Concomitant]
  5. DEXAMETHASONE (DEXAMETHASONE) (UNKNOWN) [Concomitant]
  6. BRIMONIDINE (BRIMONIDINE) (UNKNOWN) [Concomitant]
  7. CHLORHEXIDINE (CHLORHEXIDINE) (UNKNOWN)? [Concomitant]
  8. FINASTERIDE (FINASTERIDE) (UNKNOWN) [Concomitant]
  9. FLUTICASONE (FLUTICASONE) (UNKNOWN) [Concomitant]
  10. FUROSEMIDE (FUROSEMIDE) (UNKNOWN) [Concomitant]
  11. LEVOTHYROXINE (LEVOTHYROXINE) (UNKNOWN)? [Concomitant]
  12. METOPROLOL (METOPROLOL) (UNKNOWN) [Concomitant]
  13. MULTIVITAMINS (MULTIVITAMINS) (UNKNOWN) [Concomitant]
  14. SILODOSIN (SILODOSIN) (UNKNOWN) [Concomitant]
  15. TIMOLOL (TIMOLOL) (UNKNOWN) [Concomitant]
  16. PANTOPRAZOLE [Concomitant]
  17. PREDNIONE (PREDNISONE) (UNKNOWN) [Concomitant]
  18. TAMSULOSIN (TAMSULOSIN) (UNKNOWN) [Concomitant]
  19. ACETAMINOPHEN (PARACETAMOL) (UNKNOWN) (PARACETAMOL) [Concomitant]
  20. DOCUSATE (DOCUSATE) (UNKNOWN) [Concomitant]
  21. GLUCAON (GLUCAGON) (UNKNOWN) [Concomitant]
  22. GLUCOSE (GLUCOSE) (UNKNOWN) [Concomitant]
  23. INSULIN (INSULIN) (UNKNOWN) [Concomitant]
  24. ONDANSETRON (ONDANSETRON) (UNKNOWN) [Concomitant]
  25. POLYETHYLENE GLYCOL (MACROGOL)  (UNKNOWN) [Concomitant]

REACTIONS (2)
  - Confusional state [None]
  - Fatigue [None]
